FAERS Safety Report 19365901 (Version 1)
Quarter: 2021Q2

REPORT INFORMATION
  Report Type: Spontaneous
  Country: US (occurrence: US)
  Receive Date: 20210603
  Receipt Date: 20210603
  Transmission Date: 20210717
  Serious: No
  Sender: FDA-Public Use
  Company Number: None

PATIENT
  Sex: Female
  Weight: 71.55 kg

DRUGS (1)
  1. CYCLOPHOSPHAMIDE. [Suspect]
     Active Substance: CYCLOPHOSPHAMIDE
     Indication: OVARIAN CANCER
     Route: 048
     Dates: start: 20201216

REACTIONS (8)
  - Productive cough [None]
  - Malignant neoplasm progression [None]
  - Urinary tract infection [None]
  - Urinary incontinence [None]
  - Wound infection [None]
  - Illness [None]
  - Vomiting [None]
  - Animal scratch [None]
